FAERS Safety Report 12679436 (Version 1)
Quarter: 2016Q3

REPORT INFORMATION
  Report Type: Spontaneous
  Country: US (occurrence: None)
  Receive Date: 20160823
  Receipt Date: 20160823
  Transmission Date: 20161109
  Serious: Yes (Hospitalization)
  Sender: FDA-Public Use
  Company Number: None

PATIENT
  Age: 23 Year
  Sex: Male
  Weight: 99.79 kg

DRUGS (3)
  1. LATUDA [Suspect]
     Active Substance: LURASIDONE HYDROCHLORIDE
     Indication: BIPOLAR I DISORDER
     Route: 048
     Dates: start: 20160728, end: 20160818
  2. OMEGA 3 FATTY ACIDS SUPPLEMENT [Concomitant]
  3. PROZAC GENERIC [Concomitant]

REACTIONS (2)
  - Depression [None]
  - Suicide attempt [None]

NARRATIVE: CASE EVENT DATE: 20160818
